FAERS Safety Report 12632663 (Version 2)
Quarter: 2016Q3

REPORT INFORMATION
  Report Type: Spontaneous
  Country: US (occurrence: US)
  Receive Date: 20160808
  Receipt Date: 20160808
  Transmission Date: 20161109
  Serious: No
  Sender: FDA-Public Use
  Company Number: US-BEH-2015056446

PATIENT
  Sex: Female
  Weight: 52 kg

DRUGS (14)
  1. HIZENTRA [Suspect]
     Active Substance: HUMAN IMMUNOGLOBULIN G
     Route: 058
  2. GABAPENTIN. [Concomitant]
     Active Substance: GABAPENTIN
  3. HIZENTRA [Suspect]
     Active Substance: HUMAN IMMUNOGLOBULIN G
     Indication: IMMUNODEFICIENCY COMMON VARIABLE
     Route: 058
  4. HIZENTRA [Suspect]
     Active Substance: HUMAN IMMUNOGLOBULIN G
     Route: 058
  5. LORATADINE. [Concomitant]
     Active Substance: LORATADINE
  6. COMPLETE MULTIVITAMIN [Concomitant]
     Active Substance: VITAMINS
  7. BUDESONIDE. [Concomitant]
     Active Substance: BUDESONIDE
  8. MELATONIN [Concomitant]
     Active Substance: MELATONIN
  9. DIPHENHYDRAMINE. [Concomitant]
     Active Substance: DIPHENHYDRAMINE
  10. TYLENOL EX-STR [Concomitant]
  11. HYDROCORTISONE-ACETIC ACID [Concomitant]
  12. OXYCODONE [Concomitant]
     Active Substance: OXYCODONE
  13. EPIPEN [Concomitant]
     Active Substance: EPINEPHRINE
  14. TRAZODONE [Concomitant]
     Active Substance: TRAZODONE HYDROCHLORIDE

REACTIONS (1)
  - Bronchitis [Unknown]
